FAERS Safety Report 9767248 (Version 1)
Quarter: 2013Q4

REPORT INFORMATION
  Report Type: Spontaneous
  Country: US (occurrence: None)
  Receive Date: 20131216
  Receipt Date: 20131216
  Transmission Date: 20140711
  Serious: No
  Sender: FDA-Public Use
  Company Number: None

PATIENT
  Sex: Female

DRUGS (1)
  1. VELCADE [Suspect]
     Dates: start: 2009, end: 2010

REACTIONS (2)
  - Herpes zoster [None]
  - Mood altered [None]
